FAERS Safety Report 25434751 (Version 1)
Quarter: 2025Q2

REPORT INFORMATION
  Report Type: Spontaneous
  Country: US (occurrence: US)
  Receive Date: 20250613
  Receipt Date: 20250613
  Transmission Date: 20250717
  Serious: No
  Sender: MERCK SHARP & DOHME LLC
  Company Number: US-009507513-2288714

PATIENT
  Age: 36 Year
  Sex: Male

DRUGS (6)
  1. PEMBROLIZUMAB [Suspect]
     Active Substance: PEMBROLIZUMAB
     Indication: Diffuse large B-cell lymphoma stage IV
  2. BRENTUXIMAB VEDOTIN [Concomitant]
     Active Substance: BRENTUXIMAB VEDOTIN
  3. RITUXIMAB [Concomitant]
     Active Substance: RITUXIMAB
  4. GEMCITABINE [Concomitant]
     Active Substance: GEMCITABINE
  5. OXALIPLATIN [Concomitant]
     Active Substance: OXALIPLATIN
  6. AXICABTAGENE CILOLEUCEL [Concomitant]
     Active Substance: AXICABTAGENE CILOLEUCEL

REACTIONS (1)
  - Product use in unapproved indication [Unknown]
